FAERS Safety Report 4727362-X (Version None)
Quarter: 2005Q3

REPORT INFORMATION
  Report Type: 
  Country: None (occurrence: None)
  Receive Date: 20050727
  Receipt Date: 20050727
  Transmission Date: 20060218
  Serious: Yes (Hospitalization)
  Sender: FDA-Public Use
  Company Number: None

PATIENT
  Age: 24 Year
  Sex: Female
  Weight: 71.6683 kg

DRUGS (3)
  1. CARBAMAZEPINE [Suspect]
     Indication: NEURALGIA
     Dosage: 400 MG PO BID
     Route: 048
     Dates: start: 20050330
  2. TEGRETOL [Concomitant]
  3. HYDROMORPHONE [Concomitant]

REACTIONS (15)
  - BODY TEMPERATURE INCREASED [None]
  - CHILLS [None]
  - CONJUNCTIVITIS [None]
  - COORDINATION ABNORMAL [None]
  - DERMATITIS BULLOUS [None]
  - DRUG TOXICITY [None]
  - MOUTH ULCERATION [None]
  - NAUSEA [None]
  - PARAESTHESIA ORAL [None]
  - PHARYNGOLARYNGEAL PAIN [None]
  - RASH [None]
  - RASH GENERALISED [None]
  - STOMATITIS [None]
  - SWELLING FACE [None]
  - VAGINAL ULCERATION [None]
